FAERS Safety Report 6361420-1 (Version None)
Quarter: 2009Q3

REPORT INFORMATION
  Report Type: 
  Country: None (occurrence: None)
  Receive Date: 20090918
  Receipt Date: 20090914
  Transmission Date: 20100115
  Serious: Yes (Other)
  Sender: FDA-Public Use
  Company Number: DE-PFIZER INC-2009247895

PATIENT
  Age: 55 Year

DRUGS (1)
  1. VIAGRA [Suspect]
     Dosage: 50 MG, UNK
     Route: 048
     Dates: start: 20080101

REACTIONS (2)
  - DIAPHRAGMATIC PARALYSIS [None]
  - DYSPNOEA [None]
